FAERS Safety Report 4502975-9 (Version None)
Quarter: 2004Q4

REPORT INFORMATION
  Report Type: 
  Country: None (occurrence: None)
  Receive Date: 20041112
  Receipt Date: 20041029
  Transmission Date: 20050328
  Serious: Yes (Other)
  Sender: FDA-Public Use
  Company Number: 2004079492

PATIENT
  Weight: 92.9874 kg

DRUGS (18)
  1. ZOLOFT [Suspect]
     Indication: DEPRESSION
     Dosage: 50 MG (50 MG, 1 IN 1 D), ORAL
     Route: 048
     Dates: start: 20010101
  2. SERTRALINE HYDROCHLORIDE [Suspect]
     Indication: DEPRESSION
     Dosage: 50 MG (50 MG, 1 IN 1 D), ORAL
     Route: 048
     Dates: end: 20040901
  3. METFORMIN HCL [Concomitant]
  4. DIGOXIN [Concomitant]
  5. GLIMEPIRIDE [Concomitant]
  6. METOPROLOL SUCCINATE [Concomitant]
  7. FOLIC ACID [Concomitant]
  8. ISOSORBIDE MONONITRATE [Concomitant]
  9. LOSARTAN POTASSIUM [Concomitant]
  10. PRAVASTATIN [Concomitant]
  11. FENOFIBRATE [Concomitant]
  12. TOCOPHEROL CONCENTRATE CAP [Concomitant]
  13. CENTRUM SILVER (ASCORBIC ACID, CALCIUM, MINERALS  NOS, RETINOL, TOCOPH [Concomitant]
  14. ASCORBIC ACID [Concomitant]
  15. FISH OIL (FISH OIL) [Concomitant]
  16. ARGININE (ARGININE) [Concomitant]
  17. ASPIRIN [Concomitant]
  18. CALCIUM (CALCIUM) [Concomitant]

REACTIONS (9)
  - BACTERIA URINE [None]
  - DRUG INEFFECTIVE [None]
  - FALL [None]
  - HAEMARTHROSIS [None]
  - PHARMACEUTICAL PRODUCT COMPLAINT [None]
  - POLLAKIURIA [None]
  - PROSTATIC OPERATION [None]
  - PROSTATIC SPECIFIC ANTIGEN INCREASED [None]
  - PROTEINURIA [None]
